FAERS Safety Report 20129333 (Version 1)
Quarter: 2021Q4

REPORT INFORMATION
  Report Type: Spontaneous
  Country: FR (occurrence: FR)
  Receive Date: 20211130
  Receipt Date: 20211130
  Transmission Date: 20220303
  Serious: Yes (Hospitalization)
  Sender: FDA-Public Use
  Company Number: None

PATIENT
  Age: 39 Year
  Sex: Female
  Weight: 58 kg

DRUGS (8)
  1. OMEPRAZOLE [Suspect]
     Active Substance: OMEPRAZOLE
     Indication: Gastric mucosal lesion
     Dosage: 20 MG, QD (CAPSULE)
     Route: 048
     Dates: start: 20210612
  2. OFLOXACIN [Suspect]
     Active Substance: OFLOXACIN
     Indication: Infection
     Dosage: 200 MG
     Route: 048
     Dates: start: 20210612
  3. DOLIPRANE [Suspect]
     Active Substance: ACETAMINOPHEN
     Indication: Pain
     Dosage: 1 DF
     Route: 048
     Dates: start: 20210612
  4. ANETHOLTRITHION [Suspect]
     Active Substance: ANETHOLTRITHION
     Indication: Dry mouth
     Dosage: 50 MG, Q12H
     Route: 048
     Dates: start: 20210612
  5. TRAMADOL HYDROCHLORIDE [Suspect]
     Active Substance: TRAMADOL HYDROCHLORIDE
     Indication: Pain
     Dosage: UNK
     Route: 048
     Dates: start: 20210612
  6. KARDEGIC [Suspect]
     Active Substance: ASPIRIN DL-LYSINE
     Indication: Antiplatelet therapy
     Dosage: UNK
     Route: 048
     Dates: start: 20210612
  7. ETIFOXINE [Suspect]
     Active Substance: ETIFOXINE
     Indication: Anxiety
     Dosage: 50 MG, Q12H
     Route: 048
     Dates: start: 20210612
  8. AUGMENTIN [Suspect]
     Active Substance: AMOXICILLIN\CLAVULANATE POTASSIUM
     Indication: Infection
     Dosage: UNK (1G/125MG)
     Route: 048
     Dates: start: 20210612

REACTIONS (2)
  - Hepatitis acute [Not Recovered/Not Resolved]
  - Ecchymosis [Recovering/Resolving]

NARRATIVE: CASE EVENT DATE: 20210708
